FAERS Safety Report 4644777-9 (Version None)
Quarter: 2005Q2

REPORT INFORMATION
  Report Type: 
  Country: None (occurrence: None)
  Receive Date: 20050426
  Receipt Date: 20050413
  Transmission Date: 20051028
  Serious: Yes (Hospitalization)
  Sender: FDA-Public Use
  Company Number: GB-JNJFOC-20050405882

PATIENT
  Age: 52 Year
  Sex: Male

DRUGS (8)
  1. TRAMADOL HCL [Suspect]
     Indication: BACK PAIN
     Route: 049
  2. TRAMADOL HCL [Suspect]
     Indication: ARTHRITIS
     Dosage: 50-100 QDS.
     Route: 049
  3. VALDECOXIB [Suspect]
     Indication: BACK PAIN
     Route: 049
  4. VALDECOXIB [Suspect]
     Indication: ARTHRITIS
     Dosage: TOOK FOR OVER 5 YEARS
     Route: 049
  5. ROFECOXIB [Concomitant]
     Indication: BACK PAIN
     Dosage: 1-2 DAILY.
     Route: 049
  6. PARACETAMOL [Concomitant]
     Indication: BACK PAIN
     Dosage: 500MG-1G QDS.
     Route: 049
  7. GLUCOSAMINE [Concomitant]
     Indication: ARTHROPATHY
     Route: 047
  8. GLUCOSAMINE [Concomitant]
     Indication: BACK PAIN
     Route: 047

REACTIONS (5)
  - ACUTE CORONARY SYNDROME [None]
  - BLOOD CHOLESTEROL INCREASED [None]
  - DYSPEPSIA [None]
  - GASTRITIS [None]
  - LOWER RESPIRATORY TRACT INFECTION [None]
